FAERS Safety Report 12088824 (Version 1)
Quarter: 2016Q1

REPORT INFORMATION
  Report Type: Spontaneous
  Country: DE (occurrence: DE)
  Receive Date: 20160218
  Receipt Date: 20160218
  Transmission Date: 20160526
  Serious: Yes (Other)
  Sender: FDA-Public Use
  Company Number: DE-MYLANLABS-2016M1005472

PATIENT

DRUGS (1)
  1. DOPADURA C 100/25 MG [Suspect]
     Active Substance: CARBIDOPA\LEVODOPA
     Indication: PARKINSON^S DISEASE
     Dosage: UNK (3 TIMES A DAY 0.5 TABLETS/D, FOLLOWED BY 3 TIMES A DAY 1 TABLET/D, INCREASED IN OCTOBER 2015 T)
     Dates: start: 201505

REACTIONS (9)
  - Leukopenia [Unknown]
  - Muscle twitching [Not Recovered/Not Resolved]
  - Blood sodium decreased [Unknown]
  - Asthenia [Not Recovered/Not Resolved]
  - Drug ineffective [Unknown]
  - Cough [Unknown]
  - Gait disturbance [Unknown]
  - Pyrexia [Unknown]
  - Fatigue [Not Recovered/Not Resolved]

NARRATIVE: CASE EVENT DATE: 20160126
